FAERS Safety Report 4540438-5 (Version None)
Quarter: 2004Q4

REPORT INFORMATION
  Report Type: 
  Country: None (occurrence: None)
  Receive Date: 20041228
  Receipt Date: 20041215
  Transmission Date: 20050328
  Serious: Yes (Death)
  Sender: FDA-Public Use
  Company Number: 2004S1003463

PATIENT
  Age: 47 Year
  Sex: Male
  Weight: 72.5755 kg

DRUGS (1)
  1. CLOZAPINE [Suspect]
     Dosage: 100 MG QAM AND 200 MG HS, ORAL
     Route: 048
     Dates: start: 20040129

REACTIONS (1)
  - PNEUMONIA [None]
